FAERS Safety Report 20635806 (Version 1)
Quarter: 2022Q1

REPORT INFORMATION
  Report Type: Spontaneous
  Country: MX (occurrence: MX)
  Receive Date: 20220325
  Receipt Date: 20220325
  Transmission Date: 20220423
  Serious: Yes (Other)
  Sender: FDA-Public Use
  Company Number: MX-Accord-256923

PATIENT
  Age: 26 Year
  Sex: Female

DRUGS (3)
  1. OXALIPLATIN [Suspect]
     Active Substance: OXALIPLATIN
     Indication: Ovarian germ cell tumour
     Dosage: TREATED WITH 12 CYCLES IN 9 MONTHS
     Dates: start: 2015
  2. LEUCOVORIN CALCIUM [Concomitant]
     Active Substance: LEUCOVORIN CALCIUM
     Indication: Ovarian germ cell tumour
     Dosage: TREATED WITH 12 CYCLES IN 9 MONTHS
     Dates: start: 2015
  3. FLUOROURACIL [Concomitant]
     Active Substance: FLUOROURACIL
     Indication: Ovarian germ cell tumour
     Dosage: TREATED WITH 12 CYCLES IN 9 MONTHS
     Dates: start: 2015

REACTIONS (1)
  - Focal nodular hyperplasia [Unknown]

NARRATIVE: CASE EVENT DATE: 20200101
